FAERS Safety Report 5934045-7 (Version None)
Quarter: 2008Q4

REPORT INFORMATION
  Report Type: 
  Country: None (occurrence: None)
  Receive Date: 20081029
  Receipt Date: 20081022
  Transmission Date: 20090506
  Serious: Yes (Hospitalization)
  Sender: FDA-Public Use
  Company Number: US-ASTRAZENECA-2008UW23496

PATIENT
  Age: 81 Year
  Sex: Female

DRUGS (8)
  1. ARIMIDEX [Suspect]
     Indication: BREAST CANCER
     Route: 048
     Dates: start: 20050101
  2. TYLENOL [Concomitant]
     Indication: ARTHRITIS
  3. METHYLDOPA [Concomitant]
  4. ATACAND [Concomitant]
  5. NAPROSYN [Concomitant]
  6. VITAMINS [Concomitant]
  7. POTASSIUM CHLORIDE [Concomitant]
  8. HYDROCHLOROTHIAZIDE [Concomitant]

REACTIONS (3)
  - HERPES ZOSTER [None]
  - INAPPROPRIATE SCHEDULE OF DRUG ADMINISTRATION [None]
  - KNEE ARTHROPLASTY [None]
